FAERS Safety Report 9881701 (Version 2)
Quarter: 2014Q1

REPORT INFORMATION
  Report Type: Spontaneous
  Country: US (occurrence: US)
  Receive Date: 20140207
  Receipt Date: 20140207
  Transmission Date: 20141002
  Serious: No
  Sender: FDA-Public Use
  Company Number: US-GILEAD-2011-0042698

PATIENT
  Age: 46 Year
  Sex: Male
  Weight: 70.31 kg

DRUGS (11)
  1. TRUVADA [Suspect]
     Indication: HIV INFECTION
     Route: 048
     Dates: start: 20050224, end: 20110127
  2. COMBIVIR [Concomitant]
     Indication: HIV INFECTION
     Dates: start: 20110127
  3. VIRAMUNE [Concomitant]
     Indication: HIV INFECTION
  4. ACYCLOVIR [Concomitant]
  5. AMBIEN [Concomitant]
     Indication: INSOMNIA
  6. UROXATRAL [Concomitant]
     Indication: BENIGN PROSTATIC HYPERPLASIA
     Dates: start: 20090914
  7. LISINOPRIL [Concomitant]
     Indication: HYPERTENSION
     Dates: start: 20080812
  8. LEXAPRO [Concomitant]
     Indication: DEPRESSION
     Dates: start: 20080812, end: 20080819
  9. DIAZEPAM [Concomitant]
     Indication: INSOMNIA
     Dates: start: 20080819
  10. NAPROSYN [Concomitant]
     Indication: MYALGIA
     Dates: start: 20100318
  11. PREDNISONE [Concomitant]

REACTIONS (3)
  - Glucose urine present [Recovered/Resolved]
  - Haematuria [Recovered/Resolved]
  - Proteinuria [Recovered/Resolved]
